FAERS Safety Report 25118658 (Version 2)
Quarter: 2025Q1

REPORT INFORMATION
  Report Type: Spontaneous
  Country: US (occurrence: US)
  Receive Date: 20250325
  Receipt Date: 20250327
  Transmission Date: 20250408
  Serious: Yes (Hospitalization)
  Sender: AMGEN
  Company Number: US-AMGEN-USASP2025054528

PATIENT
  Age: 64 Year
  Sex: Female

DRUGS (4)
  1. REPATHA [Suspect]
     Active Substance: EVOLOCUMAB
     Indication: Blood cholesterol abnormal
     Route: 058
     Dates: start: 2025
  2. REPATHA [Suspect]
     Active Substance: EVOLOCUMAB
     Route: 058
  3. FUROSEMIDE [Concomitant]
     Active Substance: FUROSEMIDE
     Dosage: 40 MILLIGRAM, Q2WK
  4. LASIX [Concomitant]
     Active Substance: FUROSEMIDE

REACTIONS (5)
  - Cardiac failure congestive [Unknown]
  - Device difficult to use [Unknown]
  - Product communication issue [Unknown]
  - Drug dose omission by device [Unknown]
  - Emphysema [Unknown]

NARRATIVE: CASE EVENT DATE: 20250101
